FAERS Safety Report 13961649 (Version 9)
Quarter: 2019Q3

REPORT INFORMATION
  Report Type: Report from Study
  Country: CA (occurrence: CA)
  Receive Date: 20170912
  Receipt Date: 20190923
  Transmission Date: 20191004
  Serious: Yes (Hospitalization, Other)
  Sender: FDA-Public Use
  Company Number: PHHY2017CA022110

PATIENT
  Sex: Female

DRUGS (3)
  1. REVOLADE [Suspect]
     Active Substance: ELTROMBOPAG
     Indication: IMMUNE THROMBOCYTOPENIC PURPURA
     Dosage: 50 MG, QD
     Route: 048
     Dates: start: 20170202
  2. REVOLADE [Suspect]
     Active Substance: ELTROMBOPAG
     Dosage: UNK
     Route: 048
  3. REVOLADE [Suspect]
     Active Substance: ELTROMBOPAG
     Dosage: 75 MG, QD
     Route: 048

REACTIONS (19)
  - Macrocytosis [Unknown]
  - Neck pain [Unknown]
  - Myalgia [Unknown]
  - Malaise [Unknown]
  - Muscle spasms [Unknown]
  - Headache [Unknown]
  - Platelet count decreased [Unknown]
  - Contusion [Unknown]
  - Lacrimation increased [Unknown]
  - Pain in extremity [Unknown]
  - Visual impairment [Unknown]
  - Back pain [Unknown]
  - Nausea [Unknown]
  - Immune thrombocytopenic purpura [Unknown]
  - Disease recurrence [Unknown]
  - Hypoaesthesia [Unknown]
  - Platelet count abnormal [Unknown]
  - Lymphoma [Unknown]
  - Musculoskeletal stiffness [Unknown]
